FAERS Safety Report 15046018 (Version 2)
Quarter: 2018Q3

REPORT INFORMATION
  Report Type: Spontaneous
  Country: US (occurrence: US)
  Receive Date: 20180621
  Receipt Date: 20180713
  Transmission Date: 20181010
  Serious: Yes (Other)
  Sender: FDA-Public Use
  Company Number: US-009507513-1806USA007659

PATIENT
  Age: 74 Year
  Sex: Female
  Weight: 49.89 kg

DRUGS (7)
  1. CHOLECALCIFEROL [Concomitant]
     Active Substance: CHOLECALCIFEROL
  2. PROBIOTICS (UNSPECIFIED) [Concomitant]
     Active Substance: PROBIOTICS NOS
  3. LISINOPRIL. [Concomitant]
     Active Substance: LISINOPRIL
  4. KEYTRUDA [Suspect]
     Active Substance: PEMBROLIZUMAB
     Indication: MALIGNANT MELANOMA
     Dosage: 200 MG, Q3W
     Route: 042
     Dates: start: 201802
  5. VITAMINS (UNSPECIFIED) [Concomitant]
     Active Substance: VITAMINS
  6. CALCIUM (UNSPECIFIED) [Concomitant]
     Active Substance: CALCIUM
  7. ATORVASTATIN [Concomitant]
     Active Substance: ATORVASTATIN

REACTIONS (2)
  - Radiotherapy [Unknown]
  - Encephalomalacia [Unknown]

NARRATIVE: CASE EVENT DATE: 2018
